FAERS Safety Report 14803301 (Version 1)
Quarter: 2018Q2

REPORT INFORMATION
  Report Type: Spontaneous
  Country: US (occurrence: US)
  Receive Date: 20180425
  Receipt Date: 20180425
  Transmission Date: 20180711
  Serious: No
  Sender: FDA-Public Use
  Company Number: US-GLENMARK PHARMACEUTICALS-2017GMK029958

PATIENT

DRUGS (1)
  1. IMIQUIMOD. [Suspect]
     Active Substance: IMIQUIMOD
     Indication: NEOPLASM MALIGNANT
     Dosage: UNK, OD TOPICALLY, OUTSIDE THE NOSE
     Route: 061
     Dates: start: 20171116

REACTIONS (7)
  - Product expiration date issue [Unknown]
  - Product identification number issue [Unknown]
  - Product use in unapproved indication [Unknown]
  - Scab [Not Recovered/Not Resolved]
  - Nasal crusting [Not Recovered/Not Resolved]
  - Erythema [Not Recovered/Not Resolved]
  - Product lot number issue [Unknown]

NARRATIVE: CASE EVENT DATE: 20171116
